FAERS Safety Report 15639949 (Version 1)
Quarter: 2018Q4

REPORT INFORMATION
  Report Type: Spontaneous
  Country: IT (occurrence: IT)
  Receive Date: 20181120
  Receipt Date: 20181120
  Transmission Date: 20190205
  Serious: Yes (Hospitalization)
  Sender: FDA-Public Use
  Company Number: IT-LANNETT COMPANY, INC.-IT-2018LAN001333

PATIENT

DRUGS (1)
  1. DIPHENOXYLATE HCL; ATROPINE SULFATE [Suspect]
     Active Substance: ATROPINE SULFATE\DIPHENOXYLATE HYDROCHLORIDE
     Indication: OPHTHALMOLOGICAL EXAMINATION
     Dosage: UNK
     Route: 047

REACTIONS (1)
  - Stress cardiomyopathy [Recovered/Resolved]
